FAERS Safety Report 5398538-6 (Version None)
Quarter: 2007Q3

REPORT INFORMATION
  Report Type: 
  Country: None (occurrence: None)
  Receive Date: 20070726
  Receipt Date: 20061212
  Transmission Date: 20080115
  Serious: No
  Sender: FDA-Public Use
  Company Number: US-AMGEN-KDL185618

PATIENT
  Sex: Female
  Weight: 49 kg

DRUGS (4)
  1. PROCRIT [Suspect]
     Indication: ANAEMIA OF MALIGNANT DISEASE
     Route: 058
     Dates: start: 20060619
  2. IRESSA [Concomitant]
     Route: 048
     Dates: start: 20030801
  3. FOSAMAX [Concomitant]
  4. SYNTHROID [Concomitant]

REACTIONS (7)
  - ARTHRALGIA [None]
  - BLOOD COUNT ABNORMAL [None]
  - BONE PAIN [None]
  - HEADACHE [None]
  - MUSCULOSKELETAL PAIN [None]
  - NECK PAIN [None]
  - PAIN IN EXTREMITY [None]
